FAERS Safety Report 5470802-1 (Version None)
Quarter: 2007Q3

REPORT INFORMATION
  Report Type: 
  Country: None (occurrence: None)
  Receive Date: 20070928
  Receipt Date: 20070921
  Transmission Date: 20080115
  Serious: Yes (Other)
  Sender: FDA-Public Use
  Company Number: US-ASTRAZENECA-2007UW22294

PATIENT
  Sex: Female

DRUGS (1)
  1. CRESTOR [Suspect]
     Route: 048
     Dates: end: 20050101

REACTIONS (5)
  - ABASIA [None]
  - DEAFNESS BILATERAL [None]
  - DIZZINESS [None]
  - NAUSEA [None]
  - VERTIGO [None]
